FAERS Safety Report 12738733 (Version 1)
Quarter: 2016Q3

REPORT INFORMATION
  Report Type: Spontaneous
  Country: US (occurrence: US)
  Receive Date: 20160912
  Receipt Date: 20160912
  Transmission Date: 20161109
  Serious: Yes (Other)
  Sender: FDA-Public Use
  Company Number: US-ADAPT PHARMA INC-2016ADP00113

PATIENT
  Age: 45 Year
  Sex: Female
  Weight: 104.31 kg

DRUGS (5)
  1. BUSPAR [Concomitant]
     Active Substance: BUSPIRONE HYDROCHLORIDE
     Dosage: UNK
     Route: 065
  2. NARCAN [Suspect]
     Active Substance: NALOXONE HYDROCHLORIDE
     Indication: OVERDOSE
     Dosage: 4 MG, ONCE
     Route: 045
     Dates: start: 20160828, end: 20160828
  3. METOPROLOL. [Concomitant]
     Active Substance: METOPROLOL
     Dosage: UNK UNK, 2X/DAY
     Route: 065
  4. CYMBALTA [Concomitant]
     Active Substance: DULOXETINE HYDROCHLORIDE
     Dosage: UNK
     Route: 065
  5. MORPHINE [Suspect]
     Active Substance: MORPHINE
     Dosage: UNK, 1X/DAY
     Route: 065

REACTIONS (10)
  - Nervousness [Not Recovered/Not Resolved]
  - Overdose [None]
  - Tremor [Not Recovered/Not Resolved]
  - Loss of consciousness [Recovered/Resolved]
  - Anal incontinence [Recovered/Resolved]
  - Lack of spontaneous speech [Recovered/Resolved]
  - Dry mouth [Recovered/Resolved]
  - Burning sensation [Recovering/Resolving]
  - Chest pain [None]
  - Nausea [Recovered/Resolved]

NARRATIVE: CASE EVENT DATE: 20160828
